FAERS Safety Report 7023717-1 (Version None)
Quarter: 2010Q4

REPORT INFORMATION
  Report Type: 
  Country: None (occurrence: None)
  Receive Date: 20101001
  Receipt Date: 20100921
  Transmission Date: 20110411
  Serious: Yes (Disabling, Other)
  Sender: FDA-Public Use
  Company Number: US-CELGENEUS-163-21880-10080181

PATIENT
  Sex: Female

DRUGS (2)
  1. REVLIMID [Suspect]
     Route: 048
     Dates: start: 20100217, end: 20100421
  2. REVLIMID [Suspect]
     Indication: MYELOFIBROSIS

REACTIONS (2)
  - LEUKAEMIA [None]
  - THROMBOCYTOPENIA [None]
